FAERS Safety Report 12192628 (Version 1)
Quarter: 2016Q1

REPORT INFORMATION
  Report Type: Spontaneous
  Country: US (occurrence: US)
  Receive Date: 20160318
  Receipt Date: 20160318
  Transmission Date: 20160526
  Serious: No
  Sender: FDA-Public Use
  Company Number: US-ELI_LILLY_AND_COMPANY-US201603007191

PATIENT
  Age: 52 Year
  Sex: Male

DRUGS (4)
  1. AXIRON [Suspect]
     Active Substance: TESTOSTERONE
     Dosage: UNK, QD
     Route: 065
  2. AXIRON [Suspect]
     Active Substance: TESTOSTERONE
     Dosage: 90 MG, QD
     Route: 065
  3. AXIRON [Suspect]
     Active Substance: TESTOSTERONE
     Dosage: 90 MG, QD
     Route: 065
  4. AXIRON [Suspect]
     Active Substance: TESTOSTERONE
     Indication: BLOOD TESTOSTERONE DECREASED
     Dosage: 30 MG, QD
     Route: 065
     Dates: start: 2013

REACTIONS (8)
  - Mass [Unknown]
  - Blood testosterone increased [Unknown]
  - Application site irritation [Recovered/Resolved]
  - Muscle spasms [Not Recovered/Not Resolved]
  - Blood testosterone abnormal [Unknown]
  - Application site bruise [Unknown]
  - Drug dose omission [Unknown]
  - Sluggishness [Unknown]

NARRATIVE: CASE EVENT DATE: 20160312
